FAERS Safety Report 5903091-1 (Version None)
Quarter: 2008Q3

REPORT INFORMATION
  Report Type: 
  Country: None (occurrence: None)
  Receive Date: 20080930
  Receipt Date: 20080918
  Transmission Date: 20090109
  Serious: Yes (Death, Hospitalization)
  Sender: FDA-Public Use
  Company Number: DE-ROCHE-508170

PATIENT
  Age: 46 Year
  Sex: Female
  Weight: 76 kg

DRUGS (2)
  1. CAPECITABINE [Suspect]
     Indication: BREAST CANCER
     Route: 048
     Dates: start: 20070419, end: 20070709
  2. NEXIUM [Concomitant]
     Route: 048

REACTIONS (3)
  - PERICARDIAL EFFUSION [None]
  - PLEURA CARCINOMA [None]
  - TACHYCARDIA [None]
